FAERS Safety Report 6370304-4 (Version None)
Quarter: 2009Q3

REPORT INFORMATION
  Report Type: 
  Country: None (occurrence: None)
  Receive Date: 20090923
  Receipt Date: 20090331
  Transmission Date: 20100115
  Serious: No
  Sender: FDA-Public Use
  Company Number: US-BAYER-200916716NA

PATIENT
  Age: 41 Year
  Sex: Female

DRUGS (2)
  1. LNG-IUS [Suspect]
     Indication: CONTRACEPTION
     Route: 015
     Dates: start: 20050708, end: 20090318
  2. LNG-IUS [Suspect]
     Route: 015
     Dates: start: 20090318

REACTIONS (2)
  - INTRA-UTERINE CONTRACEPTIVE DEVICE EXPELLED [None]
  - UTERINE POLYP [None]
